FAERS Safety Report 23711674 (Version 1)
Quarter: 2024Q2

REPORT INFORMATION
  Report Type: Report from Study
  Country: CO (occurrence: CO)
  Receive Date: 20240405
  Receipt Date: 20240405
  Transmission Date: 20240716
  Serious: Yes (Other)
  Sender: FDA-Public Use
  Company Number: CO-TAKEDA-2023TUS067360

PATIENT
  Age: 37 Year
  Sex: Female
  Weight: 72 kg

DRUGS (1)
  1. VEDOLIZUMAB [Suspect]
     Active Substance: VEDOLIZUMAB
     Indication: Crohn^s disease
     Dosage: 300 MILLIGRAM
     Route: 042
     Dates: start: 20230621

REACTIONS (14)
  - Colitis ulcerative [Unknown]
  - Generalised oedema [Recovered/Resolved]
  - Dizziness [Unknown]
  - Drug ineffective [Unknown]
  - Gastrointestinal pain [Not Recovered/Not Resolved]
  - Frequent bowel movements [Not Recovered/Not Resolved]
  - Diarrhoea [Not Recovered/Not Resolved]
  - Alopecia [Recovering/Resolving]
  - Abdominal pain upper [Unknown]
  - Abdominal pain [Unknown]
  - Vomiting [Recovered/Resolved]
  - Headache [Unknown]
  - Nausea [Unknown]
  - Influenza [Recovered/Resolved]

NARRATIVE: CASE EVENT DATE: 20230705
